FAERS Safety Report 15802134 (Version 1)
Quarter: 2019Q1

REPORT INFORMATION
  Report Type: Spontaneous
  Country: US (occurrence: US)
  Receive Date: 20190108
  Receipt Date: 20190108
  Transmission Date: 20190417
  Serious: No
  Sender: FDA-Public Use
  Company Number: None

PATIENT
  Age: 60 Year
  Sex: Female
  Weight: 58.5 kg

DRUGS (1)
  1. ESTRADIOL 0.01% VAG CREAM 42.5 GM [Suspect]
     Active Substance: ESTRADIOL
     Indication: VULVOVAGINAL DRYNESS
     Dosage: QUANTITY:42.5 GRAM;?
     Route: 067
     Dates: start: 20190104, end: 20190106

REACTIONS (5)
  - Swelling [None]
  - Sensory disturbance [None]
  - Muscle spasms [None]
  - Pain [None]
  - Abdominal discomfort [None]

NARRATIVE: CASE EVENT DATE: 20190107
